FAERS Safety Report 8499716 (Version 21)
Quarter: 2025Q2

REPORT INFORMATION
  Report Type: Report from Study
  Country: CA (occurrence: CA)
  Receive Date: 20120409
  Receipt Date: 20250423
  Transmission Date: 20250716
  Serious: Yes (Hospitalization, Other)
  Sender: ROCHE
  Company Number: CA-ROCHE-1053158

PATIENT
  Age: 73 Year
  Sex: Female
  Weight: 113.85 kg

DRUGS (39)
  1. RITUXAN [Suspect]
     Active Substance: RITUXIMAB
     Indication: Rheumatoid arthritis
     Route: 065
  2. ACTEMRA [Suspect]
     Active Substance: TOCILIZUMAB
     Indication: Rheumatoid arthritis
     Route: 042
     Dates: start: 20100813, end: 20140107
  3. ACTEMRA [Suspect]
     Active Substance: TOCILIZUMAB
     Route: 042
     Dates: start: 20111114
  4. ACTEMRA [Suspect]
     Active Substance: TOCILIZUMAB
     Route: 042
     Dates: start: 20120731, end: 20140107
  5. ACTEMRA [Suspect]
     Active Substance: TOCILIZUMAB
     Indication: Rheumatoid arthritis
     Route: 058
     Dates: start: 20150216
  6. ACTEMRA [Suspect]
     Active Substance: TOCILIZUMAB
     Route: 058
     Dates: start: 20150223
  7. ACTEMRA [Suspect]
     Active Substance: TOCILIZUMAB
     Route: 058
     Dates: start: 20150302
  8. ACTEMRA [Suspect]
     Active Substance: TOCILIZUMAB
     Route: 058
     Dates: start: 20150309
  9. ACTEMRA [Suspect]
     Active Substance: TOCILIZUMAB
     Route: 058
     Dates: start: 20150316
  10. ACTEMRA [Suspect]
     Active Substance: TOCILIZUMAB
     Route: 058
     Dates: start: 20150323
  11. ACTEMRA [Suspect]
     Active Substance: TOCILIZUMAB
     Route: 058
     Dates: start: 20150330
  12. ACTEMRA [Suspect]
     Active Substance: TOCILIZUMAB
     Route: 058
     Dates: start: 20150406
  13. ACTEMRA [Suspect]
     Active Substance: TOCILIZUMAB
     Route: 058
     Dates: start: 20151104
  14. WARFARIN [Suspect]
     Active Substance: WARFARIN
     Indication: Product used for unknown indication
     Route: 065
     Dates: end: 201604
  15. LOMOTIL (CANADA) [Concomitant]
  16. POTASSIUM CHLORIDE [Concomitant]
     Active Substance: POTASSIUM CHLORIDE
  17. FUROSEMIDE [Concomitant]
     Active Substance: FUROSEMIDE
  18. SPIRONOLACTONE [Concomitant]
     Active Substance: SPIRONOLACTONE
  19. NADOLOL [Concomitant]
     Active Substance: NADOLOL
  20. PREDNISONE [Concomitant]
     Active Substance: PREDNISONE
     Indication: Arthritis
     Route: 048
  21. DOXYCYCLINE [Concomitant]
     Active Substance: DOXYCYCLINE
  22. RABEPRAZOLE [Concomitant]
     Active Substance: RABEPRAZOLE
  23. AMITRIPTYLINE [Concomitant]
     Active Substance: AMITRIPTYLINE
  24. TRAZODONE [Concomitant]
     Active Substance: TRAZODONE HYDROCHLORIDE
  25. ALLOPURINOL [Concomitant]
     Active Substance: ALLOPURINOL
  26. CALCIUM CARBONATE [Concomitant]
     Active Substance: CALCIUM CARBONATE
  27. DOMPERIDONE [Concomitant]
     Active Substance: DOMPERIDONE
  28. FERROUS GLUCONATE [Concomitant]
     Active Substance: FERROUS GLUCONATE
  29. HYDROMORPHONE [Concomitant]
     Active Substance: HYDROMORPHONE
  30. PANTOPRAZOLE [Concomitant]
     Active Substance: PANTOPRAZOLE
  31. ZOPICLONE [Concomitant]
     Active Substance: ZOPICLONE
  32. ACETAMINOPHEN [Concomitant]
     Active Substance: ACETAMINOPHEN
  33. ZOFRAN [Concomitant]
     Active Substance: ONDANSETRON HYDROCHLORIDE
  34. ONDANSETRON [Concomitant]
     Active Substance: ONDANSETRON
  35. PROLIA [Concomitant]
     Active Substance: DENOSUMAB
     Dosage: LAST DOSE ON 03/DEC/2014
  36. PINAVERIUM BROMIDE [Concomitant]
     Active Substance: PINAVERIUM BROMIDE
  37. LASIX [Concomitant]
     Active Substance: FUROSEMIDE
  38. ASPIRIN [Concomitant]
     Active Substance: ASPIRIN
  39. METHYLPREDNISOLONE [Concomitant]
     Active Substance: METHYLPREDNISOLONE

REACTIONS (35)
  - Osteoarthritis [Recovering/Resolving]
  - Sinusitis [Recovered/Resolved]
  - Diarrhoea [Not Recovered/Not Resolved]
  - Hip fracture [Unknown]
  - Hip arthroplasty [Unknown]
  - Haematoma [Recovered/Resolved]
  - Neuropathy peripheral [Not Recovered/Not Resolved]
  - Hepatic enzyme increased [Recovered/Resolved]
  - Hypotension [Unknown]
  - Haemorrhage [Unknown]
  - Deep vein thrombosis [Unknown]
  - Urosepsis [Recovered/Resolved]
  - Nephrolithiasis [Unknown]
  - Hydronephrosis [Unknown]
  - Perinephric collection [Unknown]
  - Glomerular filtration rate decreased [Unknown]
  - Atelectasis [Unknown]
  - Renal cyst [Unknown]
  - Hiatus hernia [Unknown]
  - Umbilical hernia [Unknown]
  - Pleural effusion [Unknown]
  - Mean cell haemoglobin concentration decreased [Unknown]
  - Red cell distribution width increased [Unknown]
  - Bilirubin urine present [Unknown]
  - Lung consolidation [Unknown]
  - Decubitus ulcer [Unknown]
  - Haemorrhage [Recovered/Resolved]
  - Device related infection [Unknown]
  - Product dose omission issue [Unknown]
  - Small intestinal obstruction [Unknown]
  - Scar [Unknown]
  - Rheumatoid arthritis [Not Recovered/Not Resolved]
  - Drug ineffective [Unknown]
  - Ill-defined disorder [Unknown]
  - Treatment failure [Unknown]

NARRATIVE: CASE EVENT DATE: 20170101
